FAERS Safety Report 8269317 (Version 5)
Quarter: 2012Q4

REPORT INFORMATION
  Report Type: Report from Study
  Country: JP (occurrence: JP)
  Receive Date: 20111130
  Receipt Date: 20121214
  Transmission Date: 20130627
  Serious: Yes (Death, Life-Threatening, Hospitalization)
  Sender: FDA-Public Use
  Company Number: JP-PFIZER INC-2011288909

PATIENT
  Age: 78 Year
  Sex: Male
  Weight: 65 kg

DRUGS (8)
  1. TEMSIROLIMUS [Suspect]
     Indication: RENAL CELL CARCINOMA
     Dosage: 25 mg, UNK
     Route: 042
     Dates: start: 20110517, end: 20110810
  2. POLARAMINE [Concomitant]
     Indication: PROPHYLAXIS
     Dosage: 5 mg, 1x/day
     Route: 042
     Dates: start: 20110517
  3. OXYCONTIN [Concomitant]
     Indication: RENAL CELL CARCINOMA
     Dosage: 10 mg, 2x/day
     Route: 048
     Dates: end: 20110516
  4. OXYCONTIN [Concomitant]
     Dosage: 15 mg, 2x/day
     Route: 048
     Dates: start: 20110517, end: 20110525
  5. NOVAMIN [Concomitant]
     Dosage: 5 mg, 3x/day
     Route: 048
     Dates: end: 20110615
  6. HYPEN [Concomitant]
     Indication: RENAL CELL CARCINOMA
     Dosage: 200 mg, 2x/day
     Route: 048
  7. OPSO [Concomitant]
     Indication: RENAL CELL CARCINOMA
     Dosage: 5 mg, as needed
     Dates: start: 20110815, end: 20110914
  8. OXINORM (OXYCODONE HYDROCHLORIDE) [Concomitant]
     Indication: RENAL CELL CARCINOMA
     Dosage: 5 mg, as needed
     Dates: start: 20110803, end: 20110914

REACTIONS (4)
  - Disease progression [Fatal]
  - Renal cell carcinoma [Fatal]
  - Acute myocardial infarction [Recovered/Resolved]
  - Pneumonia bacterial [Recovering/Resolving]
